FAERS Safety Report 25510026 (Version 2)
Quarter: 2025Q3

REPORT INFORMATION
  Report Type: Spontaneous
  Country: GB (occurrence: GB)
  Receive Date: 20250703
  Receipt Date: 20250918
  Transmission Date: 20251021
  Serious: Yes (Other)
  Sender: CIPLA
  Company Number: GB-MHRA-MED-202506201446394390-DBYWL

PATIENT

DRUGS (1)
  1. FINASTERIDE [Suspect]
     Active Substance: FINASTERIDE
     Indication: Alopecia
     Route: 065

REACTIONS (4)
  - Depressed mood [Recovering/Resolving]
  - Loss of libido [Recovering/Resolving]
  - Ejaculation failure [Recovering/Resolving]
  - Penile pain [Recovering/Resolving]
